FAERS Safety Report 9421119 (Version 1)
Quarter: 2013Q3

REPORT INFORMATION
  Report Type: Spontaneous
  Country: US (occurrence: US)
  Receive Date: 20130725
  Receipt Date: 20130725
  Transmission Date: 20140515
  Serious: Yes (Hospitalization)
  Sender: FDA-Public Use
  Company Number: PHHY2013US076880

PATIENT
  Sex: 0

DRUGS (3)
  1. CARBOPLATIN [Suspect]
     Indication: BREAST CANCER STAGE II
     Route: 042
  2. DOCETAXEL [Suspect]
     Indication: BREAST CANCER STAGE II
     Dosage: 75 MG/M2, EVERY 3 WEEKS
     Route: 042
  3. TRASTUZUMAB [Suspect]
     Indication: BREAST CANCER STAGE II
     Dosage: 6 MG/M2, EVERY 3 WEEKS
     Route: 042

REACTIONS (6)
  - Thrombotic microangiopathy [Recovered/Resolved]
  - Jaundice [Recovered/Resolved]
  - Chromaturia [Recovered/Resolved]
  - Dyspnoea exertional [Recovered/Resolved]
  - Fatigue [Recovered/Resolved]
  - Anaemia [Not Recovered/Not Resolved]
